FAERS Safety Report 14344750 (Version 3)
Quarter: 2018Q1

REPORT INFORMATION
  Report Type: Report from Study
  Country: CA (occurrence: CA)
  Receive Date: 20180103
  Receipt Date: 20180122
  Transmission Date: 20180509
  Serious: Yes (Other)
  Sender: FDA-Public Use
  Company Number: PHHY2017CA193679

PATIENT
  Sex: Female

DRUGS (2)
  1. ACLASTA [Suspect]
     Active Substance: ZOLEDRONIC ACID
     Route: 042
     Dates: start: 20180116
  2. ACLASTA [Suspect]
     Active Substance: ZOLEDRONIC ACID
     Indication: OSTEOPOROSIS
     Dosage: 5 MG, UNK
     Route: 042
     Dates: start: 20170222

REACTIONS (6)
  - Neovascular age-related macular degeneration [Unknown]
  - Osteoporosis [Unknown]
  - Blindness [Unknown]
  - Inappropriate schedule of drug administration [Unknown]
  - Osteitis deformans [Unknown]
  - Condition aggravated [Unknown]
